FAERS Safety Report 6017208-4 (Version None)
Quarter: 2008Q4

REPORT INFORMATION
  Report Type: 
  Country: None (occurrence: None)
  Receive Date: 20081219
  Receipt Date: 20081211
  Transmission Date: 20090506
  Serious: Yes (Hospitalization)
  Sender: FDA-Public Use
  Company Number: RENA-1000333

PATIENT
  Age: 73 Year
  Sex: Female

DRUGS (8)
  1. RENAGEL [Suspect]
     Indication: HYPERPHOSPHATAEMIA
     Dosage: 5.6 G, QD, ORAL
     Route: 048
     Dates: start: 20070320
  2. METOPROLOL (METOPROLOL) UNKNOWN [Concomitant]
  3. DARVOCET (PARACETAMOL) UNKNOWN [Concomitant]
  4. SULAR (NISOLDIPINE) UNKNOWN [Concomitant]
  5. LISINOPRIL [Concomitant]
  6. RENA-VITE (ASCORBIC ACID, VITAMIN B NOS) UNKNOWN [Concomitant]
  7. XANAX (ALPRAZOLAM) UNKNOWN [Concomitant]
  8. CLONIDINE (CLONIDINE) UNKNOWN [Concomitant]

REACTIONS (3)
  - CEREBROVASCULAR ACCIDENT [None]
  - DYSPHAGIA [None]
  - MOTOR DYSFUNCTION [None]
